FAERS Safety Report 9229566 (Version 4)
Quarter: 2013Q4

REPORT INFORMATION
  Report Type: Spontaneous
  Country: US (occurrence: US)
  Receive Date: 20130414
  Receipt Date: 20131028
  Transmission Date: 20140711
  Serious: Yes (Death, Hospitalization)
  Sender: FDA-Public Use
  Company Number: US-B.I. PHARMACEUTICALS,INC./RIDGEFIELD-2013-BI-09701BP

PATIENT
  Age: 85 Year
  Sex: Female
  Weight: 79.38 kg

DRUGS (18)
  1. PRADAXA [Suspect]
     Indication: ATRIAL FIBRILLATION
     Dosage: 150 MG
     Route: 048
     Dates: start: 20110301, end: 20110405
  2. DIOVAN [Concomitant]
     Dosage: 80 MG
     Route: 048
     Dates: start: 2003, end: 2011
  3. LOVASTATIN [Concomitant]
     Dosage: 40 MG
     Route: 048
     Dates: start: 2003, end: 2011
  4. ASPIRIN [Concomitant]
     Dosage: 81 MG
     Route: 048
     Dates: start: 2006, end: 2011
  5. LASIX [Concomitant]
     Dosage: 80 MG
     Route: 048
     Dates: start: 2003, end: 2011
  6. FLONASE [Concomitant]
     Dates: start: 2010, end: 2011
  7. PROAIR [Concomitant]
     Dosage: 2 PUF
     Dates: start: 2010, end: 2011
  8. HUMALOG INSULIN [Concomitant]
     Dates: start: 2006, end: 2011
  9. HUMALOG INSULIN [Concomitant]
     Dosage: 14 U
     Dates: start: 2006, end: 2011
  10. LANTUS INSULIN [Concomitant]
     Dosage: 20 U
     Dates: start: 2006, end: 2011
  11. POTASSIUM [Concomitant]
  12. MULTAQ [Concomitant]
     Dosage: 800 MG
     Route: 048
  13. METAMUCIL [Concomitant]
     Dates: start: 1991, end: 2011
  14. CALCIUM [Concomitant]
     Dosage: 1000 MG
     Route: 048
     Dates: start: 2001, end: 2011
  15. ZOFRAN [Concomitant]
     Indication: NAUSEA
  16. METOLAZONE [Concomitant]
     Dosage: 1.0714 MG
     Route: 048
  17. PREDNISONE [Concomitant]
     Dosage: 5 MG
     Route: 048
  18. TRAMADOL [Concomitant]
     Indication: PAIN
     Route: 048

REACTIONS (4)
  - Pulmonary haemorrhage [Fatal]
  - Haemoptysis [Unknown]
  - Respiratory failure [Unknown]
  - Coagulopathy [Unknown]
